FAERS Safety Report 9327372 (Version 2)
Quarter: 2013Q3

REPORT INFORMATION
  Report Type: Spontaneous
  Country: US (occurrence: US)
  Receive Date: 20130604
  Receipt Date: 20130708
  Transmission Date: 20140515
  Serious: No
  Sender: FDA-Public Use
  Company Number: US-AMGEN-USASP2013037627

PATIENT
  Age: 70 Year
  Sex: Female

DRUGS (3)
  1. ENBREL [Suspect]
     Indication: PSORIASIS
     Dosage: 50 MG, 2 TIMES/WK
     Dates: start: 20120927
  2. SULFACETAMIDE [Concomitant]
     Dosage: UNK
  3. SULFUR [Concomitant]
     Dosage: UNK

REACTIONS (6)
  - Erythema [Not Recovered/Not Resolved]
  - Dandruff [Not Recovered/Not Resolved]
  - Skin exfoliation [Not Recovered/Not Resolved]
  - Stress [Unknown]
  - Anxiety disorder [Unknown]
  - Psoriasis [Not Recovered/Not Resolved]
